FAERS Safety Report 17577283 (Version 1)
Quarter: 2020Q1

REPORT INFORMATION
  Report Type: Spontaneous
  Country: US (occurrence: US)
  Receive Date: 20200319
  Receipt Date: 20200319
  Transmission Date: 20200409
  Serious: Yes (Hospitalization)
  Sender: FDA-Public Use
  Company Number: None

PATIENT
  Sex: Female

DRUGS (34)
  1. BENZONATE [Concomitant]
     Active Substance: BENZONATATE
  2. DOXYCYCL HYC [Concomitant]
  3. DYMIST [Concomitant]
  4. METOPROL TAR [Concomitant]
  5. OMEPRAZOLE. [Concomitant]
     Active Substance: OMEPRAZOLE
  6. ROPINIROLE. [Concomitant]
     Active Substance: ROPINIROLE
  7. TRIAMCINOLON  CRE [Concomitant]
  8. URSODIOL. [Concomitant]
     Active Substance: URSODIOL
  9. ESBRIET [Suspect]
     Active Substance: PIRFENIDONE
     Indication: IDIOPATHIC PULMONARY FIBROSIS
     Route: 048
     Dates: start: 20181006
  10. CLINDAMYCIN. [Concomitant]
     Active Substance: CLINDAMYCIN
  11. DIGOXIN. [Concomitant]
     Active Substance: DIGOXIN
  12. LUMIGAN [Concomitant]
     Active Substance: BIMATOPROST
  13. NITROGLYCRN [Concomitant]
  14. RHOPRESSA [Concomitant]
     Active Substance: NETARSUDIL MESYLATE
  15. ONDANSETRON [Concomitant]
     Active Substance: ONDANSETRON
  16. BUSPIRONE [Concomitant]
     Active Substance: BUSPIRONE HYDROCHLORIDE
  17. ELIQUIS [Concomitant]
     Active Substance: APIXABAN
  18. LOSARTAN POT [Concomitant]
     Active Substance: LOSARTAN POTASSIUM
  19. METRONIDAZOL [Concomitant]
     Active Substance: METRONIDAZOLE
  20. AZELAIC ACID. [Concomitant]
     Active Substance: AZELAIC ACID
  21. BUMETANIDE. [Concomitant]
     Active Substance: BUMETANIDE
  22. CYANOCOBALAM [Concomitant]
     Active Substance: CYANOCOBALAMIN
  23. FLORASTOR [Concomitant]
     Active Substance: SACCHAROMYCES CEREVISIAE
  24. MATZIM LA [Concomitant]
     Active Substance: DILTIAZEM HYDROCHLORIDE
  25. POT CHLROIDE [Concomitant]
  26. ROSUVASTATIN. [Concomitant]
     Active Substance: ROSUVASTATIN
  27. AZELASTINE. [Concomitant]
     Active Substance: AZELASTINE HYDROCHLORIDE
  28. FOLBEE [Concomitant]
     Active Substance: CYANOCOBALAMIN\FOLIC ACID\PYRIDOXINE HYDROCHLORIDE
  29. MAG OXIDE [Concomitant]
     Active Substance: MAGNESIUM OXIDE
  30. PONARIS [Concomitant]
  31. CYCLOBENZAR [Concomitant]
  32. FLUCONAZOLE. [Concomitant]
     Active Substance: FLUCONAZOLE
  33. JANUMET XR [Concomitant]
     Active Substance: METFORMIN HYDROCHLORIDE\SITAGLIPTIN PHOSPHATE
  34. METHYLPRED [Concomitant]
     Active Substance: METHYLPREDNISOLONE

REACTIONS (3)
  - Heart rate increased [None]
  - Nausea [None]
  - Therapy cessation [None]
